FAERS Safety Report 9531244 (Version 1)
Quarter: 2013Q3

REPORT INFORMATION
  Report Type: Spontaneous
  Country: US (occurrence: None)
  Receive Date: 20130916
  Receipt Date: 20130916
  Transmission Date: 20140515
  Serious: Yes (Other)
  Sender: FDA-Public Use
  Company Number: None

PATIENT
  Age: 58 Year
  Sex: Female
  Weight: 104.33 kg

DRUGS (1)
  1. METFORMIN [Suspect]
     Indication: BLOOD GLUCOSE
     Dosage: 1 PILL
     Route: 048

REACTIONS (5)
  - Heart rate increased [None]
  - Dyspnoea [None]
  - Syncope [None]
  - Asthenia [None]
  - Arthropathy [None]
